FAERS Safety Report 8983962 (Version 1)
Quarter: 2012Q4

REPORT INFORMATION
  Report Type: Spontaneous
  Country: US (occurrence: None)
  Receive Date: 20121218
  Receipt Date: 20121218
  Transmission Date: 20130627
  Serious: Yes (Other)
  Sender: FDA-Public Use
  Company Number: None

PATIENT
  Sex: Female
  Weight: 109.77 kg

DRUGS (2)
  1. GEMFIBROZIL [Suspect]
     Indication: HIGH CHOLESTEROL
     Dates: start: 201211
  2. WELCHOL [Suspect]
     Indication: HIGH CHOLESTEROL
     Dates: start: 2008, end: 2009

REACTIONS (2)
  - Pain in extremity [None]
  - Myalgia [None]
